FAERS Safety Report 13715754 (Version 1)
Quarter: 2017Q3

REPORT INFORMATION
  Report Type: Other
  Country: CN (occurrence: CN)
  Receive Date: 20170705
  Receipt Date: 20170705
  Transmission Date: 20171127
  Serious: Yes (Other)
  Sender: FDA-Public Use
  Company Number: CN-DEXPHARM-20170963

PATIENT
  Age: 21 Year
  Sex: Female

DRUGS (3)
  1. LEVETIRACETAM. [Suspect]
     Active Substance: LEVETIRACETAM
     Indication: EPILEPSY
  2. OXCARBAZEPINE. [Suspect]
     Active Substance: OXCARBAZEPINE
  3. LAMOTRIGINE. [Suspect]
     Active Substance: LAMOTRIGINE

REACTIONS (2)
  - Abortion spontaneous [Recovered/Resolved]
  - Drug administration error [Unknown]
